FAERS Safety Report 9820578 (Version 1)
Quarter: 2013Q4

REPORT INFORMATION
  Report Type: Spontaneous
  Country: US (occurrence: None)
  Receive Date: 20131025
  Receipt Date: 20131025
  Transmission Date: 20140711
  Serious: No
  Sender: FDA-Public Use
  Company Number: AP356-00037-SPO-US

PATIENT
  Sex: Female
  Weight: 115.4 kg

DRUGS (4)
  1. BELVIQ (LORCASERIN HYDROCHLORIDE) [Suspect]
     Dosage: 20 MG, 2 IN 1 D, ORAL
     Route: 048
     Dates: start: 20130712, end: 20130722
  2. METOPROLOL [Concomitant]
  3. METFORMIN [Concomitant]
  4. LOSARTAN [Concomitant]

REACTIONS (2)
  - Vision blurred [None]
  - Dizziness [None]
